FAERS Safety Report 6465519-0 (Version None)
Quarter: 2009Q4

REPORT INFORMATION
  Report Type: 
  Country: None (occurrence: None)
  Receive Date: 20091201
  Receipt Date: 20081126
  Transmission Date: 20100525
  Serious: No
  Sender: FDA-Public Use
  Company Number: US-AMGEN-KDL314682

PATIENT
  Sex: Female

DRUGS (9)
  1. ENBREL [Suspect]
     Indication: PSORIASIS
     Route: 058
     Dates: start: 20080917
  2. LANOXIN [Concomitant]
  3. DIOVAN HCT [Concomitant]
  4. ZOCOR [Concomitant]
  5. ADVAIR DISKUS 100/50 [Concomitant]
  6. WELLBUTRIN [Concomitant]
  7. UNKNOWN [Concomitant]
  8. FLONASE [Concomitant]
  9. ASTELIN [Concomitant]

REACTIONS (1)
  - CONTUSION [None]
